FAERS Safety Report 12464214 (Version 2)
Quarter: 2016Q3

REPORT INFORMATION
  Report Type: Spontaneous
  Country: US (occurrence: US)
  Receive Date: 20160614
  Receipt Date: 20160728
  Transmission Date: 20161109
  Serious: Yes (Hospitalization)
  Sender: FDA-Public Use
  Company Number: US-GLAXOSMITHKLINE-US2016083760

PATIENT
  Age: 50 Year
  Sex: Male

DRUGS (7)
  1. LORAZEPAM. [Concomitant]
     Active Substance: LORAZEPAM
  2. OXYCODONE [Concomitant]
     Active Substance: OXYCODONE
  3. VISTARIL [Concomitant]
     Active Substance: HYDROXYZINE PAMOATE
  4. SIMVASTATIN. [Concomitant]
     Active Substance: SIMVASTATIN
  5. VENTOLIN HFA [Concomitant]
     Active Substance: ALBUTEROL SULFATE
  6. FENTANYL. [Concomitant]
     Active Substance: FENTANYL
  7. ADVAIR DISKUS [Suspect]
     Active Substance: FLUTICASONE PROPIONATE\SALMETEROL XINAFOATE
     Indication: ASTHMA
     Dosage: 500/50 MCG, 1 PUFF, BID
     Route: 055
     Dates: start: 2006

REACTIONS (12)
  - Dehydration [Unknown]
  - Underdose [Unknown]
  - Asthma [Not Recovered/Not Resolved]
  - Nausea [Unknown]
  - Product quality issue [Unknown]
  - Vomiting [Unknown]
  - Prostatic disorder [Unknown]
  - Gastrointestinal disorder [Unknown]
  - Wheezing [Not Recovered/Not Resolved]
  - Anxiety disorder [Unknown]
  - Drug dose omission [Recovered/Resolved]
  - Abdominal pain [Unknown]

NARRATIVE: CASE EVENT DATE: 201605
